FAERS Safety Report 14285055 (Version 2)
Quarter: 2018Q1

REPORT INFORMATION
  Report Type: Spontaneous
  Country: US (occurrence: US)
  Receive Date: 20171214
  Receipt Date: 20180316
  Transmission Date: 20180509
  Serious: No
  Sender: FDA-Public Use
  Company Number: US-ASTRAZENECA-2017SF25333

PATIENT
  Sex: Male
  Weight: 87.1 kg

DRUGS (3)
  1. SYMBICORT [Suspect]
     Active Substance: BUDESONIDE\FORMOTEROL FUMARATE DIHYDRATE
     Indication: CHRONIC OBSTRUCTIVE PULMONARY DISEASE
     Dosage: 160/4.5 ONE PUFF, TWO TIMES A DAY
     Route: 055
  2. TUDORZA PRESSAIR [Suspect]
     Active Substance: ACLIDINIUM BROMIDE
     Indication: CHRONIC OBSTRUCTIVE PULMONARY DISEASE
     Route: 055
  3. HYDROCODONE [Suspect]
     Active Substance: HYDROCODONE
     Route: 065

REACTIONS (5)
  - Dyspnoea [Unknown]
  - Intentional device misuse [Unknown]
  - Device malfunction [Unknown]
  - Wrong technique in device usage process [Unknown]
  - Off label use [Unknown]
